FAERS Safety Report 18387369 (Version 4)
Quarter: 2020Q4

REPORT INFORMATION
  Report Type: Spontaneous
  Country: US (occurrence: US)
  Receive Date: 20201015
  Receipt Date: 20201208
  Transmission Date: 20210114
  Serious: No
  Sender: FDA-Public Use
  Company Number: US-BIOGEN-2020BI00924202

PATIENT
  Sex: Female

DRUGS (13)
  1. AVONEX PEN [Suspect]
     Active Substance: INTERFERON BETA-1A
     Dosage: WEEK 2
     Route: 030
     Dates: start: 202009
  2. AVONEX [Suspect]
     Active Substance: INTERFERON BETA-1A
  3. LOMOTIL [Concomitant]
     Active Substance: ATROPINE SULFATE\DIPHENOXYLATE HYDROCHLORIDE
     Route: 065
  4. AVONEX [Suspect]
     Active Substance: INTERFERON BETA-1A
     Indication: MULTIPLE SCLEROSIS
     Route: 065
     Dates: start: 20201106
  5. ZOLOFT [Concomitant]
     Active Substance: SERTRALINE HYDROCHLORIDE
     Route: 065
  6. TOPAMAX [Concomitant]
     Active Substance: TOPIRAMATE
     Route: 065
  7. MECLIZINE [Concomitant]
     Active Substance: MECLIZINE HYDROCHLORIDE
     Route: 065
  8. AVONEX PEN [Suspect]
     Active Substance: INTERFERON BETA-1A
     Dosage: WEEK 3
     Route: 030
     Dates: start: 202009
  9. AVONEX [Suspect]
     Active Substance: INTERFERON BETA-1A
  10. ADVIL [Concomitant]
     Active Substance: IBUPROFEN
     Route: 065
  11. AVONEX [Suspect]
     Active Substance: INTERFERON BETA-1A
  12. AVONEX PEN [Suspect]
     Active Substance: INTERFERON BETA-1A
     Indication: MULTIPLE SCLEROSIS
     Route: 030
     Dates: start: 20200911
  13. AVONEX PEN [Suspect]
     Active Substance: INTERFERON BETA-1A
     Dosage: WEEK 4
     Route: 030
     Dates: start: 202009

REACTIONS (9)
  - Treatment noncompliance [Unknown]
  - Nervousness [Unknown]
  - Wrong technique in device usage process [Unknown]
  - Drug ineffective [Unknown]
  - Migraine [Recovered/Resolved]
  - Injection site pain [Recovered/Resolved]
  - Blood pressure increased [Unknown]
  - Heart rate increased [Unknown]
  - Influenza like illness [Unknown]
